FAERS Safety Report 5910158-0 (Version None)
Quarter: 2008Q4

REPORT INFORMATION
  Report Type: 
  Country: None (occurrence: None)
  Receive Date: 20081006
  Receipt Date: 20081006
  Transmission Date: 20090506
  Serious: Yes (Other)
  Sender: FDA-Public Use
  Company Number: None

PATIENT
  Age: 32 Year
  Sex: Female
  Weight: 63.5036 kg

DRUGS (1)
  1. MIRENA [Suspect]
     Indication: CONTRACEPTION
     Dates: start: 20060719

REACTIONS (13)
  - ABDOMINAL PAIN [None]
  - ALOPECIA [None]
  - ANXIETY [None]
  - BACK PAIN [None]
  - DIZZINESS [None]
  - FATIGUE [None]
  - HEADACHE [None]
  - HYPOAESTHESIA [None]
  - MEMORY IMPAIRMENT [None]
  - OEDEMA PERIPHERAL [None]
  - VISION BLURRED [None]
  - VISUAL IMPAIRMENT [None]
  - WEIGHT INCREASED [None]
